FAERS Safety Report 9491141 (Version 2)
Quarter: 2014Q2

REPORT INFORMATION
  Report Type: Report from Study
  Country: FR (occurrence: FR)
  Receive Date: 20130830
  Receipt Date: 20140407
  Transmission Date: 20141212
  Serious: Yes (Hospitalization)
  Sender: FDA-Public Use
  Company Number: FR-ASTELLAS-2013EU007397

PATIENT
  Age: 69 Year
  Sex: Male

DRUGS (6)
  1. TACROLIMUS [Suspect]
     Dosage: 7 MG/DAY, UNKNOWN/D
     Route: 065
     Dates: start: 20130613
  2. LASILIX                            /00032601/ [Concomitant]
     Dosage: UNK
     Route: 065
     Dates: start: 20130619, end: 20130726
  3. DIFFU-K [Concomitant]
     Dosage: UNK
     Route: 065
     Dates: start: 20130620, end: 20130726
  4. COUMADINE [Concomitant]
     Dosage: UNK
     Route: 065
     Dates: start: 20130705
  5. MECIR [Concomitant]
     Dosage: UNK
     Route: 065
     Dates: start: 20130716
  6. TAHOR [Concomitant]
     Dosage: UNK
     Route: 065
     Dates: start: 20130719

REACTIONS (2)
  - Renal failure acute [Recovered/Resolved]
  - Ureteric stenosis [Recovered/Resolved]
